FAERS Safety Report 4407713-6 (Version None)
Quarter: 2004Q3

REPORT INFORMATION
  Report Type: 
  Country: None (occurrence: None)
  Receive Date: 20040721
  Receipt Date: 20040707
  Transmission Date: 20050211
  Serious: Yes (Other)
  Sender: FDA-Public Use
  Company Number: EWC040639778

PATIENT
  Age: 47 Year
  Sex: Male

DRUGS (1)
  1. HUMALOG [Suspect]
     Indication: DIABETES MELLITUS
     Dates: start: 20030101

REACTIONS (3)
  - PURPURA [None]
  - RASH PRURITIC [None]
  - SPINAL FUSION ACQUIRED [None]
